FAERS Safety Report 14496829 (Version 1)
Quarter: 2018Q1

REPORT INFORMATION
  Report Type: Spontaneous
  Country: US (occurrence: US)
  Receive Date: 20180207
  Receipt Date: 20180207
  Transmission Date: 20180509
  Serious: No
  Sender: FDA-Public Use
  Company Number: US-PFIZER INC-2018044947

PATIENT
  Age: 7 Year
  Sex: Male
  Weight: 18.6 kg

DRUGS (6)
  1. GUANFACINE. [Concomitant]
     Active Substance: GUANFACINE
     Indication: OPPOSITIONAL DEFIANT DISORDER
  2. RISPERDAL [Concomitant]
     Active Substance: RISPERIDONE
     Indication: ANGER
     Dosage: 0.25 MG TABLET BY MOUTH 1-2 TABLETS EVERY AFTERNOON
     Route: 048
     Dates: start: 201711
  3. QUILLICHEW ER [Suspect]
     Active Substance: METHYLPHENIDATE HYDROCHLORIDE
     Indication: OPPOSITIONAL DEFIANT DISORDER
  4. RISPERDAL [Concomitant]
     Active Substance: RISPERIDONE
     Indication: AGGRESSION
  5. QUILLICHEW ER [Suspect]
     Active Substance: METHYLPHENIDATE HYDROCHLORIDE
     Indication: ATTENTION DEFICIT/HYPERACTIVITY DISORDER
     Dosage: 20 MG, 1X/DAY
     Route: 048
     Dates: start: 20171221
  6. GUANFACINE. [Concomitant]
     Active Substance: GUANFACINE
     Indication: AFFECTIVE DISORDER
     Dosage: 3 MG, DAILY [2 MG IN THE MORNING 1 MG IN THE EVENING ]
     Route: 048
     Dates: start: 201711

REACTIONS (1)
  - Drug ineffective [Unknown]
